FAERS Safety Report 4997612-3 (Version None)
Quarter: 2006Q1

REPORT INFORMATION
  Report Type: 
  Country: None (occurrence: None)
  Receive Date: 20060315
  Receipt Date: 20060117
  Transmission Date: 20060701
  Serious: Yes (Other)
  Sender: FDA-Public Use
  Company Number: 433055

PATIENT
  Age: 94 Year
  Sex: Female

DRUGS (1)
  1. BONIVA [Suspect]

REACTIONS (2)
  - NAUSEA [None]
  - VOMITING [None]
